FAERS Safety Report 16256192 (Version 1)
Quarter: 2019Q2

REPORT INFORMATION
  Report Type: Spontaneous
  Country: US (occurrence: US)
  Receive Date: 20190430
  Receipt Date: 20190430
  Transmission Date: 20190711
  Serious: Yes (Other)
  Sender: FDA-Public Use
  Company Number: US-ASTRAZENECA-2019SE65249

PATIENT
  Age: 77 Year
  Sex: Female
  Weight: 58.6 kg

DRUGS (6)
  1. MEMANTINE HYDROCHLORIDE. [Concomitant]
     Active Substance: MEMANTINE HYDROCHLORIDE
     Indication: CEREBROVASCULAR ACCIDENT
     Dates: start: 201904
  2. ENBREL [Concomitant]
     Active Substance: ETANERCEPT
     Indication: ARTHRITIS
  3. TRAMADOL. [Concomitant]
     Active Substance: TRAMADOL
     Indication: ARTHRALGIA
     Dosage: 50 MG, AS NEEDED (TAKES HALF A TABLET AS NEEDED FOR PAIN)
  4. ASPIRIN. [Concomitant]
     Active Substance: ASPIRIN
     Indication: CEREBROVASCULAR ACCIDENT
     Dosage: 80.0MG UNKNOWN
     Dates: start: 201902
  5. BYSTOLIC [Concomitant]
     Active Substance: NEBIVOLOL HYDROCHLORIDE
     Indication: BLOOD PRESSURE MEASUREMENT
     Dosage: 5 MG, 1X/DAY, (CUT IN HALF AND TAKE HALF ONE A DAY)
     Dates: start: 201903
  6. NEXIUM 24HR [Suspect]
     Active Substance: ESOMEPRAZOLE MAGNESIUM
     Indication: GASTROOESOPHAGEAL REFLUX DISEASE
     Dosage: 1 DF, 1X/DAY [TAKE 1 CAPSULE A DAY, A HALF HOUR BEFORE BREAKFAST BY MOUTH]
     Route: 048
     Dates: start: 201902

REACTIONS (2)
  - Cerebrovascular accident [Unknown]
  - Product use issue [Unknown]

NARRATIVE: CASE EVENT DATE: 201902
